FAERS Safety Report 9426719 (Version 1)
Quarter: 2013Q3

REPORT INFORMATION
  Report Type: Spontaneous
  Country: US (occurrence: US)
  Receive Date: 20130730
  Receipt Date: 20130730
  Transmission Date: 20140515
  Serious: No
  Sender: FDA-Public Use
  Company Number: US-SANOFI-AVENTIS-2012SA083607

PATIENT
  Sex: Female

DRUGS (2)
  1. AMBIEN [Suspect]
     Route: 064
     Dates: start: 2004, end: 2004
  2. AMBIEN [Suspect]
     Route: 063
     Dates: start: 2004, end: 2004

REACTIONS (9)
  - Obsessive-compulsive disorder [Not Recovered/Not Resolved]
  - Exposure during pregnancy [Unknown]
  - Exposure during breast feeding [Unknown]
  - Hypersomnia [Unknown]
  - Hypokinesia [Not Recovered/Not Resolved]
  - Gait disturbance [Unknown]
  - Anxiety [Not Recovered/Not Resolved]
  - Abnormal behaviour [Not Recovered/Not Resolved]
  - Attention deficit/hyperactivity disorder [Not Recovered/Not Resolved]
